FAERS Safety Report 6731916-9 (Version None)
Quarter: 2010Q2

REPORT INFORMATION
  Report Type: 
  Country: None (occurrence: None)
  Receive Date: 20100519
  Receipt Date: 20100511
  Transmission Date: 20101027
  Serious: Yes (Other)
  Sender: FDA-Public Use
  Company Number: BR-ASTRAZENECA-2010SE21877

PATIENT
  Age: 55 Year
  Sex: Female
  Weight: 69 kg

DRUGS (2)
  1. SYMBICORT [Suspect]
     Indication: ASTHMA
     Dosage: 160/4.5 MCG
     Route: 055
  2. SYMBICORT [Suspect]
     Dosage: 320/9 MCG
     Route: 055

REACTIONS (3)
  - ATRIAL SEPTAL DEFECT [None]
  - ELECTROCARDIOGRAM ABNORMAL [None]
  - JOINT DISLOCATION [None]
